FAERS Safety Report 9063658 (Version 2)
Quarter: 2013Q1

REPORT INFORMATION
  Report Type: Spontaneous
  Country: IT (occurrence: IT)
  Receive Date: 20130213
  Receipt Date: 20130301
  Transmission Date: 20140127
  Serious: Yes (Death)
  Sender: FDA-Public Use
  Company Number: IT-GENZYME-CLOF-1002514

PATIENT
  Age: 40 None
  Sex: Male

DRUGS (20)
  1. EVOLTRA [Suspect]
     Indication: ACUTE MYELOID LEUKAEMIA
     Dosage: 80 MG, QD
     Route: 042
     Dates: start: 20130131, end: 20130204
  2. VANCOMYCIN [Concomitant]
     Indication: HYPERPYREXIA
     Dosage: 500 MG, EVERY SIX HOURS (08 DOSES TOTAL AMOUNT)
     Route: 042
     Dates: start: 20130201, end: 20130203
  3. VANCOMYCIN [Concomitant]
     Indication: MOUTH ULCERATION
  4. TAZOCIN [Concomitant]
     Indication: PRODUCT USED FOR UNKNOWN INDICATION
     Dosage: 4 G+0.500 G, EVERY 08 HOURS (04 DOSES TOTAL AMOUNT)
     Route: 042
     Dates: start: 20130202, end: 20130203
  5. MERREM [Concomitant]
     Indication: HYPERPYREXIA
     Dosage: 1 G, QID
     Route: 042
     Dates: start: 20130203, end: 20130205
  6. MERREM [Concomitant]
     Indication: MOUTH ULCERATION
  7. CUBICIN [Concomitant]
     Indication: PRODUCT USED FOR UNKNOWN INDICATION
     Dosage: 700 MG, UNK (350 MG POWDER FOR CONCENTRATE FOR I.V. INFUSION 10 ML) (50MG/ML)
     Route: 042
     Dates: start: 20130203, end: 20130205
  8. DALACIN FOSFATO [Concomitant]
     Indication: PRODUCT USED FOR UNKNOWN INDICATION
     Dosage: 4 DF, UNK (600 MG/4ML)
     Route: 042
     Dates: start: 20130203, end: 20130205
  9. CYTARABINE [Concomitant]
     Indication: ACUTE MYELOID LEUKAEMIA
     Dosage: 2 G, QD (DAY1-2-3-4 AND 5)
     Route: 065
     Dates: start: 20130131, end: 20130204
  10. AMPICILLIN [Concomitant]
     Indication: HYPERPYREXIA
     Dosage: UNK G, TID
     Route: 042
     Dates: start: 20130202
  11. AMPICILLIN [Concomitant]
     Indication: MOUTH ULCERATION
  12. TAZOBACTAM [Concomitant]
     Indication: HYPERPYREXIA
     Dosage: 4.5 G, TID
     Route: 042
     Dates: start: 20130202
  13. TAZOBACTAM [Concomitant]
     Indication: MOUTH ULCERATION
  14. CLINDAMYCIN [Concomitant]
     Indication: PRODUCT USED FOR UNKNOWN INDICATION
     Dosage: 600 MG, QID
     Route: 065
  15. ITRACONAZOLE [Concomitant]
     Indication: PRODUCT USED FOR UNKNOWN INDICATION
     Dosage: 200 MG, BID
     Route: 065
     Dates: start: 20130102, end: 20130205
  16. OMEPRAZOLE [Concomitant]
     Indication: PRODUCT USED FOR UNKNOWN INDICATION
     Dosage: UNK
     Route: 065
     Dates: start: 20130102, end: 20130205
  17. FUROSEMIDE [Concomitant]
     Indication: PRODUCT USED FOR UNKNOWN INDICATION
     Dosage: 25 MG, QD
     Route: 065
     Dates: start: 20130102, end: 20130128
  18. FUROSEMIDE [Concomitant]
     Dosage: 25 MG, QD
     Route: 065
     Dates: start: 20130131, end: 20130205
  19. ALLOPURINOL [Concomitant]
     Indication: PRODUCT USED FOR UNKNOWN INDICATION
     Dosage: 300 MG, QD
     Route: 065
     Dates: start: 20130129, end: 20130202
  20. TROPISETRON [Concomitant]
     Indication: PRODUCT USED FOR UNKNOWN INDICATION
     Dosage: 1 VIAL, BID
     Route: 065
     Dates: start: 20130131, end: 20130205

REACTIONS (4)
  - Stevens-Johnson syndrome [Fatal]
  - Shock [Fatal]
  - Renal failure [Fatal]
  - Acute respiratory failure [Fatal]
